FAERS Safety Report 23597453 (Version 1)
Quarter: 2024Q1

REPORT INFORMATION
  Report Type: Spontaneous
  Country: US (occurrence: None)
  Receive Date: 20240305
  Receipt Date: 20240305
  Transmission Date: 20240410
  Serious: Yes (Life-Threatening, Hospitalization)
  Sender: FDA-Public Use
  Company Number: None

PATIENT
  Age: 58 Year
  Sex: Female

DRUGS (1)
  1. CARVYKTI [Suspect]
     Active Substance: CILTACABTAGENE AUTOLEUCEL
     Indication: Plasma cell myeloma
     Dates: start: 20230928, end: 20230928

REACTIONS (8)
  - Cytokine release syndrome [None]
  - Infusion related reaction [None]
  - Pyrexia [None]
  - Hypotension [None]
  - Inflammation [None]
  - Myalgia [None]
  - Facial nerve disorder [None]
  - Facial paralysis [None]

NARRATIVE: CASE EVENT DATE: 20231005
